FAERS Safety Report 5739359-1 (Version None)
Quarter: 2008Q2

REPORT INFORMATION
  Report Type: 
  Country: None (occurrence: None)
  Receive Date: 20080514
  Receipt Date: 20080121
  Transmission Date: 20081010
  Serious: Yes (Hospitalization)
  Sender: FDA-Public Use
  Company Number: APP200800039

PATIENT
  Age: 53 Year
  Sex: Male
  Weight: 142.8831 kg

DRUGS (1)
  1. VANCOMYCIN HYDROCHLORIDE [Suspect]
     Indication: STAPHYLOCOCCAL INFECTION
     Dosage: 1 GM, 1 IN 12 HR,
     Dates: start: 20080120, end: 20080121

REACTIONS (3)
  - CHILLS [None]
  - DYSPNOEA [None]
  - PYREXIA [None]
